FAERS Safety Report 6666313-8 (Version None)
Quarter: 2010Q2

REPORT INFORMATION
  Report Type: 
  Country: None (occurrence: None)
  Receive Date: 20100402
  Receipt Date: 20100324
  Transmission Date: 20101027
  Serious: Yes (Hospitalization, Disabling, Other)
  Sender: FDA-Public Use
  Company Number: US-ELI_LILLY_AND_COMPANY-US200911006357

PATIENT
  Sex: Male
  Weight: 97.506 kg

DRUGS (4)
  1. ZYPREXA [Suspect]
     Dosage: 5 MG, EACH EVENING
     Route: 065
     Dates: start: 20031001, end: 20040512
  2. SYMBYAX [Suspect]
     Indication: DEPRESSIVE SYMPTOM
     Dosage: 1 D/F, DAILY (1/D)
     Dates: start: 20040513, end: 20041201
  3. SYMBYAX [Suspect]
     Dosage: 1 D/F, DAILY (1/D)
     Dates: start: 20050203, end: 20051101
  4. DEPAKOTE [Concomitant]
     Dosage: 500 MG, EACH EVENING

REACTIONS (10)
  - BLOOD CHOLESTEROL ABNORMAL [None]
  - BLOOD TRIGLYCERIDES INCREASED [None]
  - DEPRESSIVE SYMPTOM [None]
  - DIABETES MELLITUS [None]
  - HEPATIC CIRRHOSIS [None]
  - HEPATIC STEATOSIS [None]
  - HYPERTENSION [None]
  - METABOLIC SYNDROME [None]
  - PANCREATITIS [None]
  - WEIGHT INCREASED [None]
